FAERS Safety Report 8115674 (Version 4)
Quarter: 2014Q2

REPORT INFORMATION
  Report Type: Spontaneous
  Country: US (occurrence: US)
  Receive Date: 20110831
  Receipt Date: 20140416
  Transmission Date: 20141212
  Serious: Yes (Other)
  Sender: FDA-Public Use
  Company Number: CHPA2011US11593

PATIENT
  Age: 57 Year
  Sex: Female

DRUGS (3)
  1. 4 WAY FAST ACTING NASAL SPRAY [Suspect]
     Indication: NASAL CONGESTION
     Dosage: 2 SPRAYS EACH NOSTRIL, 6 TIMES A DAY
     Route: 006
     Dates: end: 201108
  2. 4 WAY FAST ACTING NASAL SPRAY [Suspect]
     Indication: SEASONAL ALLERGY
  3. STEROIDS NOS [Concomitant]
     Route: 006

REACTIONS (2)
  - Drug dependence [Recovered/Resolved]
  - Incorrect drug administration duration [Unknown]
